FAERS Safety Report 10071404 (Version 5)
Quarter: 2014Q4

REPORT INFORMATION
  Report Type: Spontaneous
  Country: US (occurrence: US)
  Receive Date: 20140410
  Receipt Date: 20141007
  Transmission Date: 20150528
  Serious: Yes (Disabling, Other)
  Sender: FDA-Public Use
  Company Number: US-009507513-1404USA002777

PATIENT
  Sex: Female

DRUGS (2)
  1. FOSAMAX [Suspect]
     Active Substance: ALENDRONATE SODIUM
     Indication: OSTEOPOROSIS
     Dosage: 70 MG, QW
     Route: 048
     Dates: start: 1999, end: 2006
  2. HORMONES (UNSPECIFIED) [Concomitant]
     Active Substance: UNSPECIFIED INGREDIENT
     Dosage: UNK
     Dates: start: 1975, end: 2012

REACTIONS (11)
  - Fracture [Unknown]
  - Vitamin D deficiency [Unknown]
  - Osteonecrosis of jaw [Not Recovered/Not Resolved]
  - Debridement [Unknown]
  - Tooth extraction [Unknown]
  - Kyphosis [Unknown]
  - Depression [Not Recovered/Not Resolved]
  - Osteoporosis [Unknown]
  - Hypothyroidism [Unknown]
  - Osteoarthritis [Unknown]
  - Hypertension [Unknown]

NARRATIVE: CASE EVENT DATE: 2004
